FAERS Safety Report 8578234 (Version 2)
Quarter: 2013Q1

REPORT INFORMATION
  Report Type: Spontaneous
  Country: US (occurrence: None)
  Receive Date: 20120521
  Receipt Date: 20121031
  Transmission Date: 20140127
  Serious: Yes (Hospitalization)
  Sender: FDA-Public Use
  Company Number: US-008429

PATIENT
  Sex: Female

DRUGS (5)
  1. TRANEXAMIC ACID [Suspect]
     Indication: MENORRHAGIA
     Dates: start: 20111004, end: 20111006
  2. MULTIVITAMIN /00831701/ [Concomitant]
  3. CALCIUM [Concomitant]
  4. VITAMIN D NOS [Concomitant]
  5. BLACKMORES VITAMIN C [Concomitant]

REACTIONS (2)
  - Haemoglobin decreased [None]
  - Retinal artery occlusion [None]
